FAERS Safety Report 7449121-X (Version None)
Quarter: 2011Q2

REPORT INFORMATION
  Report Type: 
  Country: None (occurrence: None)
  Receive Date: 20110502
  Receipt Date: 20110321
  Transmission Date: 20111010
  Serious: Yes (Hospitalization, Other)
  Sender: FDA-Public Use
  Company Number: US-BAYER-2010-002221

PATIENT
  Sex: Female
  Weight: 83.9 kg

DRUGS (4)
  1. OCELLA [Suspect]
     Indication: POLYCYSTIC OVARIES
  2. YAZ [Suspect]
     Indication: POLYCYSTIC OVARIES
     Dosage: UNK
  3. GLUCOPHAGE [Concomitant]
     Dosage: 1000 MG, BID
     Route: 048
  4. YASMIN [Suspect]
     Indication: POLYCYSTIC OVARIES
     Dosage: UNK

REACTIONS (1)
  - CHOLELITHIASIS [None]
